FAERS Safety Report 9699663 (Version 2)
Quarter: 2013Q4

REPORT INFORMATION
  Report Type: Spontaneous
  Country: US (occurrence: US)
  Receive Date: 20131120
  Receipt Date: 20131120
  Transmission Date: 20140711
  Serious: No
  Sender: FDA-Public Use
  Company Number: US-TEVA-359430USA

PATIENT
  Age: 22 Year
  Sex: Female
  Weight: 59.47 kg

DRUGS (3)
  1. PARAGARD 380A [Suspect]
     Indication: CONTRACEPTION
     Route: 015
     Dates: start: 20120618, end: 20120911
  2. ADDERALL [Concomitant]
     Indication: ATTENTION DEFICIT/HYPERACTIVITY DISORDER
  3. LEXAPRO [Concomitant]
     Indication: DYSTHYMIC DISORDER

REACTIONS (4)
  - Menometrorrhagia [Recovered/Resolved]
  - Pelvic pain [Unknown]
  - Dyspareunia [Unknown]
  - Device expulsion [Recovered/Resolved]
